FAERS Safety Report 9392078 (Version 1)
Quarter: 2013Q3

REPORT INFORMATION
  Report Type: Spontaneous
  Country: AU (occurrence: AU)
  Receive Date: 20130709
  Receipt Date: 20130709
  Transmission Date: 20140515
  Serious: No
  Sender: FDA-Public Use
  Company Number: AU-009507513-1307AUS001695

PATIENT
  Age: 31 Year
  Sex: Male

DRUGS (2)
  1. SAPHRIS [Suspect]
     Indication: SCHIZOPHRENIA
     Dosage: 20 MG, PER DAY
     Route: 060
  2. SAPHRIS [Suspect]
     Dosage: 15 MG, NOCTE, PER DAY
     Route: 060

REACTIONS (1)
  - Rash [Not Recovered/Not Resolved]
